FAERS Safety Report 23550554 (Version 2)
Quarter: 2025Q1

REPORT INFORMATION
  Report Type: Spontaneous
  Country: TR (occurrence: TR)
  Receive Date: 20240221
  Receipt Date: 20250225
  Transmission Date: 20250408
  Serious: Yes (Other)
  Sender: SANDOZ
  Company Number: TR-002147023-NVSC2024TR033644

PATIENT
  Age: 57 Year
  Sex: Male

DRUGS (3)
  1. EXELON [Suspect]
     Active Substance: RIVASTIGMINE TARTRATE
     Indication: Dementia with Lewy bodies
     Route: 065
  2. EXELON [Suspect]
     Active Substance: RIVASTIGMINE TARTRATE
     Indication: Dementia with Lewy bodies
     Route: 065
  3. EXELON [Suspect]
     Active Substance: RIVASTIGMINE TARTRATE
     Indication: Dementia with Lewy bodies
     Route: 065

REACTIONS (9)
  - Gastric ulcer [Unknown]
  - Abdominal discomfort [Unknown]
  - Discomfort [Unknown]
  - Illness [Unknown]
  - Hyperhidrosis [Unknown]
  - Malaise [Unknown]
  - Medication error [Unknown]
  - Product supply issue [Unknown]
  - Off label use [Unknown]
